FAERS Safety Report 8184469-5 (Version None)
Quarter: 2012Q1

REPORT INFORMATION
  Report Type: 
  Country: None (occurrence: None)
  Receive Date: 20120305
  Receipt Date: 20120229
  Transmission Date: 20120608
  Serious: Yes (Hospitalization)
  Sender: FDA-Public Use
  Company Number: ES-B.I. PHARMACEUTICALS,INC./RIDGEFIELD-2012-ES-00085ES

PATIENT
  Age: 74 Year
  Sex: Male

DRUGS (5)
  1. AMIODARONE HCL [Concomitant]
  2. PANTOPRAZOLE [Concomitant]
  3. TRAJENTA [Suspect]
     Route: 048
     Dates: start: 20120216, end: 20120226
  4. FUROSEMIDA [Concomitant]
  5. ENALAPRIL MALEATE [Concomitant]

REACTIONS (2)
  - HYPERSENSITIVITY [None]
  - ANGIOEDEMA [None]
